FAERS Safety Report 13927002 (Version 1)
Quarter: 2017Q3

REPORT INFORMATION
  Report Type: Spontaneous
  Country: FR (occurrence: FR)
  Receive Date: 20170901
  Receipt Date: 20170901
  Transmission Date: 20171127
  Serious: Yes (Other)
  Sender: FDA-Public Use
  Company Number: FR-GLAXOSMITHKLINE-FR2017117614

PATIENT
  Sex: Male

DRUGS (1)
  1. NICORETTE [Suspect]
     Active Substance: NICOTINE
     Indication: PRODUCT USED FOR UNKNOWN INDICATION
     Dosage: UNK
     Route: 048

REACTIONS (5)
  - Foreign body in gastrointestinal tract [Unknown]
  - Nicotine dependence [Not Recovered/Not Resolved]
  - Product contamination physical [Unknown]
  - Intentional product use issue [Not Recovered/Not Resolved]
  - Overdose [Not Recovered/Not Resolved]
